FAERS Safety Report 11377162 (Version 1)
Quarter: 2015Q3

REPORT INFORMATION
  Report Type: Spontaneous
  Country: US (occurrence: US)
  Receive Date: 20150813
  Receipt Date: 20150813
  Transmission Date: 20151125
  Serious: No
  Sender: FDA-Public Use
  Company Number: US-009507513-1507USA012680

PATIENT
  Age: 26 Year
  Sex: Female
  Weight: 92.97 kg

DRUGS (1)
  1. NEXPLANON [Suspect]
     Active Substance: ETONOGESTREL
     Indication: CONTRACEPTION
     Dosage: 1 ROD/THREE YEARS
     Route: 059
     Dates: start: 201407

REACTIONS (5)
  - Device difficult to use [Recovered/Resolved]
  - Mood swings [Recovering/Resolving]
  - Implant site rash [Recovered/Resolved]
  - Device breakage [Recovered/Resolved]
  - Metrorrhagia [Recovering/Resolving]

NARRATIVE: CASE EVENT DATE: 201505
